FAERS Safety Report 4488171-2 (Version None)
Quarter: 2004Q4

REPORT INFORMATION
  Report Type: 
  Country: None (occurrence: None)
  Receive Date: 20041028
  Receipt Date: 20041020
  Transmission Date: 20050328
  Serious: Yes (Hospitalization)
  Sender: FDA-Public Use
  Company Number: BR-BRISTOL-MYERS SQUIBB COMPANY-12739942

PATIENT
  Sex: Female

DRUGS (1)
  1. REYATAZ [Suspect]
     Indication: HIV INFECTION
     Route: 048

REACTIONS (4)
  - HYPERSENSITIVITY [None]
  - HYPOTENSION [None]
  - MUCOSAL INFLAMMATION [None]
  - SKIN INJURY [None]
